FAERS Safety Report 5925923-3 (Version None)
Quarter: 2008Q3

REPORT INFORMATION
  Report Type: 
  Country: None (occurrence: None)
  Receive Date: 20080923
  Receipt Date: 20070816
  Transmission Date: 20090109
  Serious: Yes (Other)
  Sender: FDA-Public Use
  Company Number: WAES 0708USA03331

PATIENT
  Age: 51 Year
  Sex: Female

DRUGS (2)
  1. VYTORIN [Suspect]
     Dosage: 10-40 MG/PO
     Route: 048
  2. COZAAR [Suspect]
     Dosage: 100 MG/PO
     Route: 048

REACTIONS (1)
  - HEPATIC FAILURE [None]
